FAERS Safety Report 20203085 (Version 1)
Quarter: 2021Q4

REPORT INFORMATION
  Report Type: Spontaneous
  Country: US (occurrence: US)
  Receive Date: 20211218
  Receipt Date: 20211218
  Transmission Date: 20220303
  Serious: Yes (Other)
  Sender: FDA-Public Use
  Company Number: US-UNITED THERAPEUTICS-UNT-2021-024207

PATIENT
  Age: 31 Year
  Sex: Female

DRUGS (2)
  1. REMODULIN [Suspect]
     Active Substance: TREPROSTINIL
     Indication: Pulmonary arterial hypertension
     Dosage: UNK UNK, CONTINUING
     Route: 058
     Dates: start: 20111128
  2. REMODULIN [Suspect]
     Active Substance: TREPROSTINIL
     Dosage: 0.10417 ?G/KG, CONTINUING
     Route: 058

REACTIONS (16)
  - Sepsis [Unknown]
  - Infection [Unknown]
  - Lethargy [Unknown]
  - Headache [Unknown]
  - Product administration interrupted [Recovered/Resolved]
  - Incorrect dose administered [Recovered/Resolved]
  - Infusion site infection [Unknown]
  - Infusion site erythema [Unknown]
  - Infusion site swelling [Unknown]
  - Infusion site discolouration [Unknown]
  - Infusion site haemorrhage [Unknown]
  - Device failure [Recovered/Resolved]
  - Device issue [Recovered/Resolved]
  - Device failure [Recovered/Resolved]
  - Wrong technique in device usage process [Unknown]
  - Infusion site scar [Unknown]

NARRATIVE: CASE EVENT DATE: 20211101
